FAERS Safety Report 6864346-X (Version None)
Quarter: 2010Q3

REPORT INFORMATION
  Report Type: 
  Country: None (occurrence: None)
  Receive Date: 20100721
  Receipt Date: 20080323
  Transmission Date: 20110219
  Serious: No
  Sender: FDA-Public Use
  Company Number: US-PFIZER INC-2008026298

PATIENT
  Sex: Male
  Weight: 81.818 kg

DRUGS (3)
  1. CHANTIX [Suspect]
     Dates: start: 20080201, end: 20080322
  2. TAMSULOSIN HYDROCHLORIDE [Concomitant]
     Indication: PROSTATOMEGALY
  3. CIPROFLOXACIN [Concomitant]
     Indication: PROSTATOMEGALY

REACTIONS (3)
  - ANXIETY [None]
  - DEPRESSION [None]
  - NERVOUSNESS [None]
